FAERS Safety Report 21513283 (Version 4)
Quarter: 2022Q4

REPORT INFORMATION
  Report Type: Report from Study
  Country: CH (occurrence: None)
  Receive Date: 20221027
  Receipt Date: 20221109
  Transmission Date: 20230113
  Serious: Yes (Hospitalization)
  Sender: FDA-Public Use
  Company Number: CH-Eisai Medical Research-EC-2022-126607

PATIENT
  Age: 65 Year
  Sex: Female
  Weight: 48.2 kg

DRUGS (11)
  1. LENVATINIB [Suspect]
     Active Substance: LENVATINIB
     Indication: Hepatocellular carcinoma
     Dosage: STARTING DOSE AT 8MG, FLUCTUATED DOSAGE
     Route: 048
     Dates: start: 20220309, end: 20221016
  2. PEMBROLIZUMAB [Suspect]
     Active Substance: PEMBROLIZUMAB
     Indication: Hepatocellular carcinoma
     Dosage: QUAVONLIMAB 25MG (+) PEMBROLIZUMAB 400MG, FLUCTUATED DOSAGE
     Route: 041
     Dates: start: 20220309, end: 20221005
  3. CARBOHYDRATES\FATTY ACIDS\MINERALS\PROTEIN\VITAMINS [Concomitant]
     Active Substance: CARBOHYDRATES\FATTY ACIDS\MINERALS\PROTEIN\VITAMINS
     Dates: start: 20210210
  4. METAMIZOL [Concomitant]
     Active Substance: METAMIZOLE SODIUM
     Dates: start: 20220309
  5. ESOMEPRAZOLE [Concomitant]
     Active Substance: ESOMEPRAZOLE
     Dates: start: 20220216
  6. BETAMETHASONE\GENTAMICIN [Concomitant]
     Active Substance: BETAMETHASONE\GENTAMICIN
     Dates: start: 20220603, end: 202209
  7. GLYCERIN\MINERAL OIL\PETROLATUM [Concomitant]
     Active Substance: GLYCERIN\MINERAL OIL\PETROLATUM
     Dates: start: 20220603
  8. OCTENISAN [ALLANTOIN;OCTENIDINE HYDROCHLORIDE] [Concomitant]
     Route: 061
     Dates: start: 20220603
  9. AMLODIPINE\PERINDOPRIL [Concomitant]
     Active Substance: AMLODIPINE\PERINDOPRIL
     Dates: start: 20220211
  10. MOXIFLOXACIN [Concomitant]
     Active Substance: MOXIFLOXACIN
     Dates: start: 20220926, end: 20221004
  11. QUAVONLIMAB [Suspect]
     Active Substance: QUAVONLIMAB

REACTIONS (1)
  - Colitis [Not Recovered/Not Resolved]

NARRATIVE: CASE EVENT DATE: 20221013
